FAERS Safety Report 6426597-8 (Version None)
Quarter: 2009Q4

REPORT INFORMATION
  Report Type: 
  Country: None (occurrence: None)
  Receive Date: 20091104
  Receipt Date: 20091026
  Transmission Date: 20100525
  Serious: Yes (Other)
  Sender: FDA-Public Use
  Company Number: US-ABBOTT-09P-163-0605049-00

PATIENT
  Sex: Male
  Weight: 81.72 kg

DRUGS (7)
  1. HUMIRA [Suspect]
     Indication: PSORIASIS
     Dates: start: 20090101
  2. FLECCANIDE [Concomitant]
     Indication: ATRIAL FIBRILLATION
  3. FLECCANIDE [Concomitant]
     Indication: CARDIAC PACEMAKER INSERTION
  4. ATENOLOL [Concomitant]
     Indication: ATRIAL FIBRILLATION
  5. COZAAR [Concomitant]
     Indication: HYPERTENSION
  6. ASPIRIN [Concomitant]
     Indication: ANTICOAGULANT THERAPY
  7. INSULIN [Concomitant]
     Indication: DIABETES MELLITUS

REACTIONS (4)
  - CHEST PAIN [None]
  - CORNEAL OEDEMA [None]
  - FOREIGN BODY SENSATION IN EYES [None]
  - VISUAL IMPAIRMENT [None]
